FAERS Safety Report 4716241-X (Version None)
Quarter: 2005Q2

REPORT INFORMATION
  Report Type: 
  Country: None (occurrence: None)
  Receive Date: 20050630
  Receipt Date: 20050217
  Transmission Date: 20051028
  Serious: Yes (Hospitalization)
  Sender: FDA-Public Use
  Company Number: USA050291055

PATIENT
  Age: 13 Year
  Sex: Female
  Weight: 55 kg

DRUGS (2)
  1. HUMALOG [Suspect]
     Indication: DIABETES MELLITUS INSULIN-DEPENDENT
     Dates: start: 19990101
  2. LANTUS [Concomitant]

REACTIONS (1)
  - HYPERGLYCAEMIA [None]
